FAERS Safety Report 7973931-3 (Version None)
Quarter: 2011Q4

REPORT INFORMATION
  Report Type: 
  Country: None (occurrence: None)
  Receive Date: 20111213
  Receipt Date: 20111208
  Transmission Date: 20120403
  Serious: Yes (Death, Other)
  Sender: FDA-Public Use
  Company Number: US-CELGENEUS-163-21880-11082905

PATIENT
  Sex: Female

DRUGS (29)
  1. NEXIUM [Concomitant]
     Route: 065
  2. NYSTATIN [Concomitant]
     Route: 065
  3. REVLIMID [Suspect]
     Indication: MULTIPLE MYELOMA
     Dosage: 15 MILLIGRAM
     Route: 048
     Dates: start: 20110215, end: 20110719
  4. ZOMETA [Concomitant]
     Route: 065
  5. ARANESP [Concomitant]
     Route: 065
  6. PROCHLORPERAZINE MALEATE [Concomitant]
     Route: 065
  7. VESICARE [Concomitant]
     Route: 065
  8. VELCADE [Concomitant]
     Route: 065
     Dates: start: 20110120
  9. VITAMIN K TAB [Concomitant]
     Route: 065
  10. ZOLOFT [Concomitant]
     Route: 065
  11. KLONOPIN [Concomitant]
     Route: 065
  12. LEVAQUIN [Concomitant]
     Route: 065
  13. LOVAZA [Concomitant]
     Route: 065
  14. DECADRON [Concomitant]
     Dosage: 40 MILLIGRAM
     Route: 065
     Dates: start: 20110120
  15. ATIVAN [Concomitant]
     Route: 065
  16. K-TAB [Concomitant]
     Route: 065
  17. OXYCODONE HCL [Concomitant]
     Route: 065
  18. CLARITIN [Concomitant]
     Route: 065
  19. XOPENEX [Concomitant]
     Route: 065
  20. ACETAMINOPHEN [Concomitant]
     Route: 065
  21. AMBIEN [Concomitant]
     Route: 065
  22. OXYCONTIN [Concomitant]
     Route: 065
  23. SODIUM CITRATE DIHYDRATE [Concomitant]
     Route: 065
  24. SENNA [Concomitant]
     Route: 065
  25. COUMADIN [Concomitant]
     Route: 065
  26. CALCIUM 500 +D [Concomitant]
     Route: 065
  27. TOPAMAX [Concomitant]
     Route: 065
  28. ALBUTEROL [Concomitant]
     Route: 065
  29. CRESTOR [Concomitant]
     Route: 065

REACTIONS (3)
  - MULTIPLE MYELOMA [None]
  - PANCYTOPENIA [None]
  - NO THERAPEUTIC RESPONSE [None]
